FAERS Safety Report 21472327 (Version 1)
Quarter: 2022Q4

REPORT INFORMATION
  Report Type: Spontaneous
  Country: US (occurrence: None)
  Receive Date: 20221018
  Receipt Date: 20221018
  Transmission Date: 20230113
  Serious: Yes (Hospitalization)
  Sender: FDA-Public Use
  Company Number: None

PATIENT
  Age: 68 Year
  Sex: Male
  Weight: 83.6 kg

DRUGS (2)
  1. CEFAZOLIN [Suspect]
     Active Substance: CEFAZOLIN
     Indication: Arthritis bacterial
     Dosage: OTHER FREQUENCY : EVERY 8 HOURS;?
     Route: 042
     Dates: start: 20220906, end: 20221011
  2. RIFAMPIN [Suspect]
     Active Substance: RIFAMPIN
     Indication: Arthritis bacterial
     Dosage: FREQUENCY : TWICE A DAY;?
     Route: 048
     Dates: start: 20220906, end: 20221006

REACTIONS (10)
  - Miliaria [None]
  - Rash [None]
  - Blood creatinine increased [None]
  - Alanine aminotransferase increased [None]
  - Aspartate aminotransferase increased [None]
  - Blood alkaline phosphatase increased [None]
  - Eosinophil count increased [None]
  - Urinary retention [None]
  - Drug eruption [None]
  - Drug reaction with eosinophilia and systemic symptoms [None]

NARRATIVE: CASE EVENT DATE: 20221013
